FAERS Safety Report 16047855 (Version 1)
Quarter: 2019Q1

REPORT INFORMATION
  Report Type: Spontaneous
  Country: GB (occurrence: GB)
  Receive Date: 20190307
  Receipt Date: 20190307
  Transmission Date: 20190418
  Serious: Yes (Hospitalization)
  Sender: FDA-Public Use
  Company Number: GB-MYLANLABS-2019M1020435

PATIENT
  Age: 82 Year
  Sex: Female

DRUGS (3)
  1. CETUXIMAB. [Suspect]
     Active Substance: CETUXIMAB
     Indication: BLADDER CANCER STAGE III
     Dosage: 1 DOSAGE FORM, QW
     Route: 042
  2. MITOMYCIN. [Suspect]
     Active Substance: MITOMYCIN
     Indication: BLADDER CANCER STAGE III
     Dosage: 12 MILLIGRAM/SQ. METER
  3. FLUOROURACIL. [Suspect]
     Active Substance: FLUOROURACIL
     Indication: BLADDER CANCER STAGE III

REACTIONS (3)
  - Off label use [Unknown]
  - Interstitial lung disease [Unknown]
  - Respiratory failure [Unknown]
